FAERS Safety Report 5745851-6 (Version None)
Quarter: 2008Q2

REPORT INFORMATION
  Report Type: 
  Country: None (occurrence: None)
  Receive Date: 20080521
  Receipt Date: 20080512
  Transmission Date: 20081010
  Serious: Yes (Hospitalization, Other)
  Sender: FDA-Public Use
  Company Number: US-AMGEN-QUU267954

PATIENT
  Sex: Female
  Weight: 90.3 kg

DRUGS (10)
  1. ENBREL [Suspect]
     Indication: RHEUMATOID ARTHRITIS
     Route: 058
     Dates: start: 20070517
  2. ENBREL [Suspect]
     Indication: PSORIATIC ARTHROPATHY
  3. COREG [Concomitant]
  4. FUROSEMIDE [Concomitant]
  5. LISINOPRIL [Concomitant]
  6. METFORMIN HCL [Concomitant]
  7. PLAVIX [Concomitant]
  8. SPIRONOLACTONE [Concomitant]
  9. ZOCOR [Concomitant]
  10. METHOTREXATE [Concomitant]
     Dates: start: 20061001

REACTIONS (5)
  - BLOOD TRIGLYCERIDES INCREASED [None]
  - DYSPEPSIA [None]
  - GASTROOESOPHAGEAL REFLUX DISEASE [None]
  - LIVER FUNCTION TEST ABNORMAL [None]
  - NAUSEA [None]
